FAERS Safety Report 8794848 (Version 2)
Quarter: 2015Q3

REPORT INFORMATION
  Report Type: Report from Study
  Country: US (occurrence: US)
  Receive Date: 20120918
  Receipt Date: 20150707
  Transmission Date: 20151125
  Serious: Yes (Death)
  Sender: FDA-Public Use
  Company Number: US-ROCHE-1103495

PATIENT
  Sex: Female

DRUGS (24)
  1. BENADRYL [Concomitant]
     Active Substance: DIPHENHYDRAMINE HYDROCHLORIDE
     Route: 042
  2. DILANTIN [Concomitant]
     Active Substance: PHENYTOIN
     Dosage: NIGHTLY
     Route: 048
  3. ONDASETRON [Concomitant]
     Active Substance: ONDANSETRON
     Dosage: ONE AND HALF HOUR PRIOR TO CHEMOTHERAPY
     Route: 065
  4. KEPPRA [Concomitant]
     Active Substance: LEVETIRACETAM
     Route: 065
  5. LORTAB (UNITED STATES) [Concomitant]
  6. PROVIGIL [Concomitant]
     Active Substance: MODAFINIL
  7. RITALIN [Concomitant]
     Active Substance: METHYLPHENIDATE HYDROCHLORIDE
     Route: 048
  8. AVASTIN [Suspect]
     Active Substance: BEVACIZUMAB
     Indication: MALIGNANT RESPIRATORY TRACT NEOPLASM
     Route: 042
     Dates: start: 20080409
  9. ACTONEL [Concomitant]
     Active Substance: RISEDRONATE SODIUM
     Route: 048
  10. DEPAKOTE ER [Concomitant]
     Active Substance: DIVALPROEX SODIUM
     Dosage: A.M
     Route: 065
  11. LASIX [Concomitant]
     Active Substance: FUROSEMIDE
     Route: 048
  12. PEPCID [Concomitant]
     Active Substance: FAMOTIDINE
     Route: 048
  13. AVASTIN [Suspect]
     Active Substance: BEVACIZUMAB
     Indication: BREAST CANCER METASTATIC
  14. DEXAMETHASONE. [Concomitant]
     Active Substance: DEXAMETHASONE
     Route: 065
  15. KEPPRA [Concomitant]
     Active Substance: LEVETIRACETAM
     Dosage: P.M
     Route: 065
  16. DEPAKOTE ER [Concomitant]
     Active Substance: DIVALPROEX SODIUM
     Route: 048
  17. DETROL LA [Concomitant]
     Active Substance: TOLTERODINE TARTRATE
     Route: 065
  18. AVASTIN [Suspect]
     Active Substance: BEVACIZUMAB
     Indication: METASTASES TO NERVOUS SYSTEM
  19. PEPCID [Concomitant]
     Active Substance: FAMOTIDINE
     Route: 048
  20. PROZAC [Concomitant]
     Active Substance: FLUOXETINE HYDROCHLORIDE
     Route: 065
  21. DECADRON [Concomitant]
     Active Substance: DEXAMETHASONE
     Dosage: P.M
     Route: 065
  22. KEPPRA [Concomitant]
     Active Substance: LEVETIRACETAM
     Dosage: A.M
     Route: 065
  23. DEPAKOTE ER [Concomitant]
     Active Substance: DIVALPROEX SODIUM
     Dosage: P.M
     Route: 065
  24. DECADRON [Concomitant]
     Active Substance: DEXAMETHASONE
     Dosage: A.M
     Route: 065

REACTIONS (14)
  - Headache [Unknown]
  - Muscular weakness [Unknown]
  - Dysphagia [Unknown]
  - Partial seizures [Unknown]
  - Hypersomnia [Unknown]
  - Depression [Unknown]
  - Death [Fatal]
  - Arthralgia [Unknown]
  - Urinary incontinence [Unknown]
  - Haematuria [Unknown]
  - Computerised tomogram abnormal [Unknown]
  - Hemiparesis [Unknown]
  - Disease progression [Unknown]
  - Performance status decreased [Unknown]
